FAERS Safety Report 8016389-0 (Version None)
Quarter: 2011Q4

REPORT INFORMATION
  Report Type: 
  Country: None (occurrence: None)
  Receive Date: 20111230
  Receipt Date: 20111226
  Transmission Date: 20120403
  Serious: Yes (Death, Other)
  Sender: FDA-Public Use
  Company Number: DE-ELI_LILLY_AND_COMPANY-DE201112007645

PATIENT

DRUGS (7)
  1. VINBLASTINE SULFATE [Concomitant]
     Dosage: 5 MG/M2, DAY 1
     Route: 042
  2. DOXORUBICIN HCL [Concomitant]
     Dosage: 50 MG/M2, DAY 1
     Route: 042
  3. DOXORUBICIN HCL [Concomitant]
     Dosage: 40 MG/M2, DAY 1
     Route: 042
  4. PREDNISOLONE [Concomitant]
     Dosage: 40 MG/M2, DAY 1 TO 5
     Route: 048
  5. GEMCITABINE HYDROCHLORIDE [Suspect]
     Indication: HODGKIN'S DISEASE
     Dosage: 1000 MG/M2, DAY 1
     Route: 042
  6. VINBLASTINE SULFATE [Concomitant]
     Dosage: 6 MG/M2, DAY 1
     Route: 042
  7. GEMCITABINE HYDROCHLORIDE [Suspect]
     Dosage: 800 MG/M2, DAY 1
     Route: 042

REACTIONS (2)
  - PNEUMONIA [None]
  - SEPSIS [None]
